FAERS Safety Report 24986856 (Version 2)
Quarter: 2025Q1

REPORT INFORMATION
  Report Type: Spontaneous
  Country: US (occurrence: US)
  Receive Date: 20250219
  Receipt Date: 20250225
  Transmission Date: 20250409
  Serious: No
  Sender: MYLAN
  Company Number: US-MYLANLABS-2025M1014662

PATIENT

DRUGS (2)
  1. LEVOTHYROXINE SODIUM [Interacting]
     Active Substance: LEVOTHYROXINE SODIUM
     Indication: Product used for unknown indication
  2. CONTRAVE [Interacting]
     Active Substance: BUPROPION HYDROCHLORIDE\NALTREXONE HYDROCHLORIDE
     Indication: Product used for unknown indication

REACTIONS (8)
  - Alopecia [Unknown]
  - Depression [Unknown]
  - Stress [Unknown]
  - Onychoclasis [Unknown]
  - Drug interaction [Unknown]
  - Recalled product administered [Unknown]
  - Drug ineffective [Unknown]
  - Recalled product [Unknown]
